FAERS Safety Report 10215706 (Version 1)
Quarter: 2014Q2

REPORT INFORMATION
  Report Type: Spontaneous
  Country: US (occurrence: None)
  Receive Date: 20140602
  Receipt Date: 20140602
  Transmission Date: 20141212
  Serious: Yes (Death)
  Sender: FDA-Public Use
  Company Number: 1713747-2014-99976

PATIENT
  Sex: Male

DRUGS (3)
  1. DELFLEX [Suspect]
     Indication: RENAL FAILURE CHRONIC
     Dosage: PERITONIEAL DIALYSIS EVERY NIGHT
  2. LIBERTY CYCLER [Concomitant]
  3. LIBERTY CYCLER SET [Concomitant]

REACTIONS (1)
  - Cardiomyopathy [None]
